FAERS Safety Report 5457493-0 (Version None)
Quarter: 2007Q3

REPORT INFORMATION
  Report Type: 
  Country: None (occurrence: None)
  Receive Date: 20070918
  Receipt Date: 20070906
  Transmission Date: 20080115
  Serious: Yes (Death, Life-Threatening)
  Sender: FDA-Public Use
  Company Number: PL-PFIZER INC-2007075014

PATIENT
  Sex: Female

DRUGS (1)
  1. GABAPENTIN [Suspect]
     Indication: POST HERPETIC NEURALGIA

REACTIONS (1)
  - ATRIAL FIBRILLATION [None]
